FAERS Safety Report 5674647-9 (Version None)
Quarter: 2008Q2

REPORT INFORMATION
  Report Type: 
  Country: None (occurrence: None)
  Receive Date: 20080304
  Receipt Date: 20070821
  Transmission Date: 20081010
  Serious: Yes (Hospitalization)
  Sender: FDA-Public Use
  Company Number: WAES 0708USA04793

PATIENT
  Age: 61 Year
  Sex: Male

DRUGS (10)
  1. PRINIVIL [Suspect]
     Dosage: PO
     Route: 048
  2. ALPHAGAN [Concomitant]
  3. BUSPAR [Concomitant]
  4. NEXIUM [Concomitant]
  5. PROZAC [Concomitant]
  6. RESTORIL [Concomitant]
  7. TOPROL-XL [Concomitant]
  8. XALATAN [Concomitant]
  9. ALBUTEROL [Concomitant]
  10. ASPIRIN [Concomitant]

REACTIONS (3)
  - ANGIOEDEMA [None]
  - CHEST DISCOMFORT [None]
  - HYPERGLYCAEMIA [None]
